FAERS Safety Report 16718433 (Version 2)
Quarter: 2019Q4

REPORT INFORMATION
  Report Type: Report from Study
  Country: US (occurrence: US)
  Receive Date: 20190820
  Receipt Date: 20191003
  Transmission Date: 20200122
  Serious: Yes (Hospitalization)
  Sender: FDA-Public Use
  Company Number: US-ROCHE-2380055

PATIENT
  Age: 66 Year
  Sex: Male
  Weight: 89.6 kg

DRUGS (4)
  1. IBRUTINIB [Suspect]
     Active Substance: IBRUTINIB
     Indication: MANTLE CELL LYMPHOMA
     Route: 048
     Dates: start: 20190731
  2. VENETOCLAX. [Suspect]
     Active Substance: VENETOCLAX
     Indication: MANTLE CELL LYMPHOMA
     Route: 048
     Dates: start: 20190731
  3. RITUXIMAB. [Suspect]
     Active Substance: RITUXIMAB
     Indication: MANTLE CELL LYMPHOMA
     Route: 065
     Dates: start: 20190731
  4. BENDAMUSTINE [Suspect]
     Active Substance: BENDAMUSTINE
     Indication: MANTLE CELL LYMPHOMA
     Route: 042
     Dates: start: 20190731

REACTIONS (8)
  - Joint contracture [Unknown]
  - Fatigue [Unknown]
  - Nausea [Unknown]
  - Extremity contracture [Unknown]
  - Dyspnoea [Unknown]
  - Dystonia [Unknown]
  - Back pain [Unknown]
  - Muscle contracture [Unknown]

NARRATIVE: CASE EVENT DATE: 20190811
